FAERS Safety Report 21689657 (Version 2)
Quarter: 2022Q4

REPORT INFORMATION
  Report Type: Spontaneous
  Country: GB (occurrence: GB)
  Receive Date: 20221206
  Receipt Date: 20221212
  Transmission Date: 20230113
  Serious: Yes (Other)
  Sender: FDA-Public Use
  Company Number: None

PATIENT

DRUGS (2)
  1. IMODIUM [Suspect]
     Active Substance: LOPERAMIDE HYDROCHLORIDE
     Indication: Adverse drug reaction
     Dosage: 8 - 2MG TABLETS A DAY; ;
     Route: 065
     Dates: start: 202206
  2. RIVAROXABAN [Concomitant]
     Active Substance: RIVAROXABAN
     Indication: Adverse drug reaction
     Route: 065

REACTIONS (1)
  - Alopecia [Not Recovered/Not Resolved]

NARRATIVE: CASE EVENT DATE: 20220901
